FAERS Safety Report 4900453-6 (Version None)
Quarter: 2006Q1

REPORT INFORMATION
  Report Type: 
  Country: None (occurrence: None)
  Receive Date: 20060203
  Receipt Date: 20060112
  Transmission Date: 20060701
  Serious: Yes (Hospitalization)
  Sender: FDA-Public Use
  Company Number: 2006AP00181

PATIENT
  Age: 840 Month
  Sex: Female

DRUGS (10)
  1. TENORMIN [Suspect]
     Indication: ILL-DEFINED DISORDER
     Dosage: 30 YEARS
     Route: 048
  2. MAREVAN [Concomitant]
  3. ANTI ASTHMATICS [Concomitant]
  4. ALLERGY MEDICATION [Concomitant]
  5. SERETIDE DISKUS [Concomitant]
     Route: 055
  6. ATROVENT [Concomitant]
     Route: 055
  7. FOSAMAX [Concomitant]
     Route: 048
  8. MONOKET [Concomitant]
     Route: 048
  9. THYROXIN [Concomitant]
     Route: 048
  10. ADALAT [Concomitant]
     Route: 048

REACTIONS (13)
  - ABDOMINAL DISTENSION [None]
  - ARTHRALGIA [None]
  - CHRONIC OBSTRUCTIVE PULMONARY DISEASE [None]
  - CONDITION AGGRAVATED [None]
  - DYSPNOEA [None]
  - GASTRITIS HAEMORRHAGIC [None]
  - HAEMOGLOBIN DECREASED [None]
  - HIATUS HERNIA [None]
  - JOINT SWELLING [None]
  - OEDEMA PERIPHERAL [None]
  - OROPHARYNGEAL SWELLING [None]
  - SWELLING [None]
  - SWELLING FACE [None]
